FAERS Safety Report 6763611-4 (Version None)
Quarter: 2010Q2

REPORT INFORMATION
  Report Type: 
  Country: None (occurrence: None)
  Receive Date: 20100610
  Receipt Date: 20100527
  Transmission Date: 20101027
  Serious: Yes (Other)
  Sender: FDA-Public Use
  Company Number: PHHY2010US34952

PATIENT
  Age: 55 Year
  Sex: Male

DRUGS (3)
  1. TEKTURNA HCT [Suspect]
  2. LOTREL [Suspect]
     Route: 048
  3. SULFA [Concomitant]

REACTIONS (2)
  - KNEE OPERATION [None]
  - RENAL FAILURE ACUTE [None]
